FAERS Safety Report 13459292 (Version 1)
Quarter: 2017Q2

REPORT INFORMATION
  Report Type: Spontaneous
  Country: US (occurrence: US)
  Receive Date: 20170419
  Receipt Date: 20170419
  Transmission Date: 20170830
  Serious: No
  Sender: FDA-Public Use
  Company Number: US-BAYER-2017-069036

PATIENT
  Age: 91 Year
  Sex: Female
  Weight: 58 kg

DRUGS (4)
  1. IRON PLUS [Concomitant]
  2. CLARITIN [Suspect]
     Active Substance: LORATADINE
     Indication: VIRAL UPPER RESPIRATORY TRACT INFECTION
  3. CLARITIN [Suspect]
     Active Substance: LORATADINE
     Indication: HYPERSENSITIVITY
     Dosage: 1 DF, QD
     Route: 048
     Dates: end: 20170409
  4. METFORMIN [Concomitant]
     Active Substance: METFORMIN HYDROCHLORIDE

REACTIONS (4)
  - Product taste abnormal [None]
  - Chest pain [None]
  - Poor quality drug administered [None]
  - Thirst [None]

NARRATIVE: CASE EVENT DATE: 20170409
